FAERS Safety Report 9357501 (Version 4)
Quarter: 2014Q2

REPORT INFORMATION
  Report Type: Spontaneous
  Country: IE (occurrence: IE)
  Receive Date: 20130620
  Receipt Date: 20140529
  Transmission Date: 20141212
  Serious: Yes (Other)
  Sender: FDA-Public Use
  Company Number: PHFR2013IE003483

PATIENT
  Age: 49 Year
  Sex: Male
  Weight: 74 kg

DRUGS (10)
  1. CLOZARIL [Suspect]
     Indication: SCHIZOPHRENIA, PARANOID TYPE
     Dosage: 250 MG, UNK
     Route: 048
     Dates: start: 20130118
  2. INTERFERON [Suspect]
     Indication: HEPATITIS C
     Dosage: 180 MG, QW
     Route: 065
     Dates: start: 20140130
  3. ACITRETIN [Concomitant]
     Dosage: UNK
  4. SERTRALINE [Concomitant]
     Dosage: UNK
  5. DISULFIRAM [Concomitant]
     Dosage: UNK
  6. LANSOPRAZOLE [Concomitant]
     Dosage: UNK
  7. AMLODIPINE [Concomitant]
     Dosage: UNK
  8. FERROUS FUMARATE [Concomitant]
     Dosage: UNK
  9. NAPROXEN [Concomitant]
     Dosage: 500 MG, QD
     Route: 048
     Dates: start: 201402
  10. SALAMOL [Concomitant]
     Dosage: UNK

REACTIONS (6)
  - Hepatitis C [Not Recovered/Not Resolved]
  - Ceruloplasmin increased [Unknown]
  - Platelet count decreased [Not Recovered/Not Resolved]
  - Haemoglobin decreased [Unknown]
  - Neutrophil count decreased [Unknown]
  - White blood cell count decreased [Not Recovered/Not Resolved]
